FAERS Safety Report 20200719 (Version 1)
Quarter: 2021Q4

REPORT INFORMATION
  Report Type: Spontaneous
  Country: CN (occurrence: CN)
  Receive Date: 20211217
  Receipt Date: 20211217
  Transmission Date: 20220303
  Serious: Yes (Other)
  Sender: FDA-Public Use
  Company Number: CN-ABBOTT-2021A-1344073

PATIENT
  Age: 68 Year
  Sex: Male
  Weight: 50 kg

DRUGS (1)
  1. FENOFIBRATE [Suspect]
     Active Substance: FENOFIBRATE
     Indication: Hypertriglyceridaemia
     Dosage: DAILY DOSE 1 TABLET (UNIT DOSE 1 TABLET)
     Route: 048
     Dates: start: 20211005, end: 20211109

REACTIONS (1)
  - Hepatic enzyme abnormal [Recovering/Resolving]

NARRATIVE: CASE EVENT DATE: 20211109
